FAERS Safety Report 9027235 (Version 4)
Quarter: 2014Q1

REPORT INFORMATION
  Report Type: Spontaneous
  Country: JP (occurrence: JP)
  Receive Date: 20130123
  Receipt Date: 20140123
  Transmission Date: 20141002
  Serious: Yes (Hospitalization, Other)
  Sender: FDA-Public Use
  Company Number: JP-VERTEX PHARMACEUTICALS INC.-2013-001010

PATIENT
  Age: 69 Year
  Sex: Male

DRUGS (19)
  1. TELAVIC [Suspect]
     Indication: CHRONIC HEPATITIS C
     Dosage: 2250 MG, QD
     Route: 048
     Dates: start: 20121102, end: 20121115
  2. TELAVIC [Suspect]
     Dosage: 1500 MG, QD
     Route: 048
     Dates: start: 20121116, end: 20121212
  3. TELAVIC [Suspect]
     Dosage: 1000 MG, QD
     Route: 048
     Dates: start: 20121213, end: 20121230
  4. RIBAVIRIN [Suspect]
     Indication: CHRONIC HEPATITIS C
     Dosage: 800 MG, QD
     Route: 048
     Dates: start: 20121102, end: 20121121
  5. RIBAVIRIN [Suspect]
     Dosage: 600 MG, QD
     Route: 048
     Dates: start: 20121122, end: 20121128
  6. RIBAVIRIN [Suspect]
     Dosage: 800 MG, QD
     Route: 048
     Dates: start: 20121129, end: 20121205
  7. RIBAVIRIN [Suspect]
     Dosage: 600 MG, QD
     Route: 048
     Dates: start: 20121206, end: 20121212
  8. RIBAVIRIN [Suspect]
     Dosage: 800 MG, QD
     Route: 048
     Dates: start: 20121213, end: 20130103
  9. RIBAVIRIN [Suspect]
     Dosage: 400 MG, QD
     Route: 048
     Dates: start: 20130104, end: 20130130
  10. RIBAVIRIN [Suspect]
     Dosage: 500 MG, QD
     Route: 048
     Dates: start: 20130131, end: 20130206
  11. RIBAVIRIN [Suspect]
     Dosage: 600 MG, QD
     Route: 048
     Dates: start: 20130207
  12. PEGINTERFERON ALFA-2B [Suspect]
     Indication: CHRONIC HEPATITIS C
     Dosage: 1.8 ?G/KG, QW
     Route: 058
     Dates: start: 20121102, end: 20121218
  13. PEGINTERFERON ALFA-2B [Suspect]
     Dosage: 1.45 ?G/KG, QW
     Route: 058
     Dates: start: 20121219, end: 20121227
  14. PEGINTERFERON ALFA-2B [Suspect]
     Dosage: 1.45 ?G/KG, QW
     Route: 058
     Dates: start: 20130104
  15. DIOVAN [Concomitant]
     Dosage: 40 MG, QD
     Route: 048
     Dates: end: 20130131
  16. EPADEL S [Concomitant]
     Dosage: 2 PACKS, QD
     Route: 048
     Dates: start: 20121102, end: 20130109
  17. FEBURIC [Concomitant]
     Dosage: 20 MG, QD
     Route: 048
     Dates: start: 20121102, end: 20130109
  18. PREDNISOLONE [Concomitant]
     Dosage: 30 MG, QD
     Route: 048
     Dates: start: 20130109, end: 20130115
  19. OMEPRAL [Concomitant]
     Dosage: 20 MG, QD
     Route: 048
     Dates: start: 20130109

REACTIONS (7)
  - White blood cell count decreased [Recovered/Resolved]
  - Stevens-Johnson syndrome [Recovered/Resolved]
  - Glomerular filtration rate decreased [Recovered/Resolved]
  - Decreased appetite [Recovered/Resolved]
  - Drug eruption [Recovered/Resolved]
  - Platelet count decreased [Recovered/Resolved]
  - Haemoglobin decreased [Not Recovered/Not Resolved]
